FAERS Safety Report 24091306 (Version 3)
Quarter: 2024Q3

REPORT INFORMATION
  Report Type: Spontaneous
  Country: US (occurrence: US)
  Receive Date: 20240715
  Receipt Date: 20240903
  Transmission Date: 20241017
  Serious: Yes (Other)
  Sender: AMGEN
  Company Number: US-AMGEN-USASP2024136601

PATIENT
  Age: 70 Year
  Sex: Female

DRUGS (2)
  1. UPLIZNA [Suspect]
     Active Substance: INEBILIZUMAB-CDON
     Indication: Neuromyelitis optica spectrum disorder
     Dosage: UNK, DOSES WERE TO BE GIVEN ON DAY 1 AND DAY 15 AND THEN EVERY 6 MONTHS
     Route: 065
     Dates: start: 20240426
  2. ASPIRIN [Concomitant]
     Active Substance: ASPIRIN
     Dosage: UNK, QD
     Route: 048

REACTIONS (7)
  - Blindness [Not Recovered/Not Resolved]
  - Cerebral ischaemia [Unknown]
  - Brain neoplasm benign [Unknown]
  - Vitreous detachment [Unknown]
  - Open angle glaucoma [Unknown]
  - Cataract nuclear [Unknown]
  - Pituitary tumour benign [Unknown]

NARRATIVE: CASE EVENT DATE: 20240101
